FAERS Safety Report 7738094-8 (Version None)
Quarter: 2011Q3

REPORT INFORMATION
  Report Type: 
  Country: None (occurrence: None)
  Receive Date: 20110908
  Receipt Date: 20110906
  Transmission Date: 20111222
  Serious: Yes (Other)
  Sender: FDA-Public Use
  Company Number: US-PFIZER INC-2011184968

PATIENT
  Sex: Male
  Weight: 95.238 kg

DRUGS (3)
  1. LEVAQUIN [Suspect]
     Dosage: UNK
  2. NEXIUM [Concomitant]
     Indication: GASTROOESOPHAGEAL REFLUX DISEASE
     Dosage: 40 MG, 1X/DAY
  3. ZYVOX [Suspect]
     Indication: STAPHYLOCOCCAL INFECTION
     Dosage: 600 MG, 2X/DAY
     Route: 048
     Dates: start: 20110819, end: 20110829

REACTIONS (19)
  - BALANCE DISORDER [None]
  - RENAL IMPAIRMENT [None]
  - OEDEMA PERIPHERAL [None]
  - DIZZINESS [None]
  - HEADACHE [None]
  - EYE SWELLING [None]
  - FLATULENCE [None]
  - GLOMERULAR FILTRATION RATE DECREASED [None]
  - NEUTROPHIL COUNT INCREASED [None]
  - HYPOTENSION [None]
  - DYSPHAGIA [None]
  - PHOTOPHOBIA [None]
  - ABDOMINAL DISTENSION [None]
  - NAUSEA [None]
  - APTYALISM [None]
  - C-REACTIVE PROTEIN INCREASED [None]
  - HAEMATOCRIT DECREASED [None]
  - HYPERSENSITIVITY [None]
  - VISUAL IMPAIRMENT [None]
